FAERS Safety Report 4853931-2 (Version None)
Quarter: 2005Q4

REPORT INFORMATION
  Report Type: 
  Country: None (occurrence: None)
  Receive Date: 20051213
  Receipt Date: 20051128
  Transmission Date: 20060501
  Serious: Yes (Hospitalization)
  Sender: FDA-Public Use
  Company Number: MEDI-0003882

PATIENT
  Age: 68 Year
  Sex: Female
  Weight: 71.2147 kg

DRUGS (6)
  1. ETHYOL [Suspect]
     Indication: CHEMOTHERAPY
     Dosage: 500 MG, 5 IN 1 WK, SUBCUTANEOUS
     Route: 058
     Dates: start: 20051031, end: 20051114
  2. ETHYOL [Suspect]
     Indication: RADIOTHERAPY
     Dosage: 500 MG, 5 IN 1 WK, SUBCUTANEOUS
     Route: 058
     Dates: start: 20051031, end: 20051114
  3. ETHYOL [Suspect]
  4. CHEMOTHERAPEUTIC AGENT [Concomitant]
  5. RADIATION THERAPY [Concomitant]
  6. PREMARIN [Concomitant]

REACTIONS (6)
  - CHILLS [None]
  - DIARRHOEA [None]
  - FEBRILE NEUTROPENIA [None]
  - INJECTION SITE IRRITATION [None]
  - PRURITUS [None]
  - WHITE BLOOD CELL COUNT DECREASED [None]
